FAERS Safety Report 12655824 (Version 2)
Quarter: 2016Q3

REPORT INFORMATION
  Report Type: Spontaneous
  Country: US (occurrence: US)
  Receive Date: 20160816
  Receipt Date: 20160920
  Transmission Date: 20161109
  Serious: No
  Sender: FDA-Public Use
  Company Number: US-PFIZER INC-2016384049

PATIENT
  Sex: Female

DRUGS (3)
  1. SIMPONI [Suspect]
     Active Substance: GOLIMUMAB
     Indication: RHEUMATOID ARTHRITIS
     Dosage: UNK, MONTHLY, (50 ONCE MONTH)
     Dates: start: 1999
  2. MOBIC [Suspect]
     Active Substance: MELOXICAM
     Indication: RHEUMATOID ARTHRITIS
     Dosage: UNK, ALTERNATE DAY (7.5)
     Dates: start: 1999
  3. METHOTREXATE SODIUM. [Suspect]
     Active Substance: METHOTREXATE SODIUM
     Indication: RHEUMATOID ARTHRITIS
     Dosage: 0.5 ML, WEEKLY, (0.5 ML ONCE WEEK)
     Dates: start: 200602

REACTIONS (7)
  - Feeling hot [Recovered/Resolved]
  - Neck pain [Recovered/Resolved]
  - Feeling abnormal [Recovered/Resolved]
  - Condition aggravated [Recovered/Resolved]
  - Musculoskeletal pain [Recovered/Resolved]
  - Pyrexia [Recovered/Resolved]
  - Pain in extremity [Recovered/Resolved]

NARRATIVE: CASE EVENT DATE: 200601
